FAERS Safety Report 6409601-2 (Version None)
Quarter: 2009Q4

REPORT INFORMATION
  Report Type: 
  Country: None (occurrence: None)
  Receive Date: 20091019
  Receipt Date: 20091019
  Transmission Date: 20100525
  Serious: No
  Sender: FDA-Public Use
  Company Number: None

PATIENT
  Age: 69 Year
  Sex: Male

DRUGS (4)
  1. AZITHROMYCIN [Suspect]
     Dosage: 600 MG ONCE DAILY
     Dates: start: 20080226, end: 20080703
  2. RIFABUTIN [Suspect]
     Dosage: 150 MG TWO TABLETS TWICE DAILY
     Dates: start: 20080226, end: 20080703
  3. ETHAMBUTOL HYDROCHLORIDE [Suspect]
     Dosage: 400 MG FIVE TABLETS DAILY
     Dates: start: 20080226, end: 20080618
  4. VALACYCLOVIR [Concomitant]

REACTIONS (2)
  - CHOLESTATIC LIVER INJURY [None]
  - HEPATIC STEATOSIS [None]
